FAERS Safety Report 20055046 (Version 3)
Quarter: 2022Q3

REPORT INFORMATION
  Report Type: Spontaneous
  Country: US (occurrence: US)
  Receive Date: 20211110
  Receipt Date: 20220716
  Transmission Date: 20221027
  Serious: No
  Sender: FDA-Public Use
  Company Number: US-LUPIN PHARMACEUTICALS INC.-2021-21725

PATIENT
  Sex: Female

DRUGS (1)
  1. ALBUTEROL SULFATE [Suspect]
     Active Substance: ALBUTEROL SULFATE
     Indication: Wheezing
     Dosage: UNK UNK, PRN 2 PUFFS UP TO 4 TIMES DAILY EVERY 6 HOURS AS NEEDED
     Dates: start: 2021

REACTIONS (2)
  - Device issue [Unknown]
  - No adverse event [Unknown]
